FAERS Safety Report 6604153-6 (Version None)
Quarter: 2010Q1

REPORT INFORMATION
  Report Type: 
  Country: None (occurrence: None)
  Receive Date: 20100226
  Receipt Date: 20090611
  Transmission Date: 20100710
  Serious: No
  Sender: FDA-Public Use
  Company Number: A0790396A

PATIENT
  Age: 40 Year
  Sex: Male

DRUGS (3)
  1. LAMICTAL CD [Suspect]
     Indication: BIPOLAR DISORDER
     Route: 048
     Dates: end: 20090605
  2. PHENOBARB [Concomitant]
  3. VITAMINS [Concomitant]

REACTIONS (2)
  - ILL-DEFINED DISORDER [None]
  - IRRITABILITY [None]
